FAERS Safety Report 11724310 (Version 1)
Quarter: 2015Q4

REPORT INFORMATION
  Report Type: Spontaneous
  Country: AU (occurrence: AU)
  Receive Date: 20151111
  Receipt Date: 20151111
  Transmission Date: 20160304
  Serious: Yes (Life-Threatening)
  Sender: FDA-Public Use
  Company Number: AU-PFIZER INC-2015379993

PATIENT
  Sex: Female

DRUGS (1)
  1. DOSTINEX [Suspect]
     Active Substance: CABERGOLINE
     Dosage: 1 DF, WEEKLY

REACTIONS (5)
  - Impaired work ability [Unknown]
  - Blood prolactin increased [Unknown]
  - Malaise [Unknown]
  - Drug withdrawal syndrome [Unknown]
  - Thyroid disorder [Unknown]
